FAERS Safety Report 10771826 (Version 8)
Quarter: 2016Q2

REPORT INFORMATION
  Report Type: Report from Study
  Country: CA (occurrence: CA)
  Receive Date: 20150206
  Receipt Date: 20160606
  Transmission Date: 20160815
  Serious: Yes (Other)
  Sender: FDA-Public Use
  Company Number: PHHY2011CA109527

PATIENT
  Age: 42 Year
  Sex: Female

DRUGS (14)
  1. SYNTHROID [Concomitant]
     Active Substance: LEVOTHYROXINE SODIUM
     Indication: PRODUCT USED FOR UNKNOWN INDICATION
     Dosage: 0.137 MG, UNK
     Route: 065
  2. ATORVASTATIN [Concomitant]
     Active Substance: ATORVASTATIN
     Indication: PRODUCT USED FOR UNKNOWN INDICATION
     Route: 065
  3. SANDOSTATIN LAR DEPOT [Suspect]
     Active Substance: OCTREOTIDE ACETATE
     Indication: ACROMEGALY
     Dosage: 30 MG, EVERY THREE WEEKS
     Route: 030
     Dates: start: 20091015
  4. SANDOSTATIN LAR DEPOT [Suspect]
     Active Substance: OCTREOTIDE ACETATE
     Dosage: 30 MG, BIW, EVERY TWO WEEKS
     Route: 030
  5. ACCURETIC [Concomitant]
     Active Substance: HYDROCHLOROTHIAZIDE\QUINAPRIL HYDROCHLORIDE
     Indication: PRODUCT USED FOR UNKNOWN INDICATION
     Route: 065
  6. ASPIRIN                            /00346701/ [Concomitant]
     Active Substance: ASCORBIC ACID\ASPIRIN
     Indication: PRODUCT USED FOR UNKNOWN INDICATION
     Dosage: 81 MG, UNK
     Route: 065
  7. SANDOSTATIN LAR DEPOT [Suspect]
     Active Substance: OCTREOTIDE ACETATE
     Dosage: 50 MG, EVERY THREE WEEKS
     Route: 030
  8. ACETYLSALICYLIC ACID [Concomitant]
     Active Substance: ASPIRIN
     Indication: PRODUCT USED FOR UNKNOWN INDICATION
     Dosage: 81 MG, QD
     Route: 065
  9. NIFEDIPINE MYLAN [Concomitant]
     Indication: PRODUCT USED FOR UNKNOWN INDICATION
     Route: 065
  10. SANDOSTATIN LAR DEPOT [Suspect]
     Active Substance: OCTREOTIDE ACETATE
     Dosage: 40 MG, TIW (EVERY THREE WEEKS)
     Route: 030
     Dates: start: 20141010
  11. NITROGLYCERINE [Concomitant]
     Active Substance: NITROGLYCERIN
     Indication: PRODUCT USED FOR UNKNOWN INDICATION
     Dosage: UNK UNK, PRN (IF NEEDED)
     Route: 065
  12. SANDOSTATIN LAR DEPOT [Suspect]
     Active Substance: OCTREOTIDE ACETATE
     Dosage: 50 MG, QMO (EVERY 4 WEEKS)
     Route: 030
  13. CABERGOLINE. [Concomitant]
     Active Substance: CABERGOLINE
     Indication: ACROMEGALY
     Dosage: 0.25 MG, MONDAY AND THURSDAY X 4 WEEKS
     Route: 065
     Dates: start: 20120716
  14. CABERGOLINE. [Concomitant]
     Active Substance: CABERGOLINE
     Dosage: 0.5 MG, MONDAY AND THURSDAY X 4 WEEKS
     Route: 065

REACTIONS (59)
  - Oropharyngeal pain [Not Recovered/Not Resolved]
  - Limb injury [Unknown]
  - Feeling abnormal [Unknown]
  - Urinary incontinence [Recovered/Resolved]
  - Injection site mass [Recovering/Resolving]
  - Injection site bruising [Recovered/Resolved]
  - Fatigue [Unknown]
  - Inappropriate schedule of drug administration [Unknown]
  - Ear swelling [Not Recovered/Not Resolved]
  - Movement disorder [Unknown]
  - Burning sensation [Unknown]
  - White blood cell count increased [Unknown]
  - Increased appetite [Unknown]
  - Pain [Not Recovered/Not Resolved]
  - Injection site haemorrhage [Recovered/Resolved]
  - Influenza [Unknown]
  - Limb discomfort [Unknown]
  - Musculoskeletal discomfort [Unknown]
  - Blood pressure diastolic increased [Unknown]
  - Ear infection [Recovered/Resolved]
  - Ear discomfort [Not Recovered/Not Resolved]
  - Peripheral swelling [Unknown]
  - Insomnia [Unknown]
  - Paranoia [Recovering/Resolving]
  - Heart rate increased [Unknown]
  - Injection site pain [Unknown]
  - Mental impairment [Unknown]
  - Injection site mass [Recovered/Resolved]
  - Pain in extremity [Unknown]
  - Stress [Unknown]
  - Pyrexia [Unknown]
  - Emotional disorder [Unknown]
  - Lethargy [Unknown]
  - Injection site bruising [Recovered/Resolved]
  - Drug effect decreased [Unknown]
  - Eye haemorrhage [Recovering/Resolving]
  - Road traffic accident [Unknown]
  - Ear pain [Not Recovered/Not Resolved]
  - Chest pain [Unknown]
  - Musculoskeletal pain [Unknown]
  - Emotional distress [Unknown]
  - Blood glucose increased [Unknown]
  - Nausea [Unknown]
  - Drug ineffective [Unknown]
  - Pituitary tumour [Unknown]
  - Erythema [Not Recovered/Not Resolved]
  - Amnesia [Unknown]
  - Otorrhoea [Unknown]
  - Injection site swelling [Recovered/Resolved]
  - Weight increased [Recovering/Resolving]
  - Blood growth hormone increased [Unknown]
  - Blood pressure increased [Unknown]
  - Painful defaecation [Unknown]
  - Speech disorder [Unknown]
  - Gait disturbance [Unknown]
  - Blood pressure systolic increased [Unknown]
  - Injection site erythema [Recovered/Resolved]
  - Headache [Unknown]
  - Wrong technique in product usage process [Unknown]

NARRATIVE: CASE EVENT DATE: 20091015
